FAERS Safety Report 8300158-8 (Version None)
Quarter: 2012Q2

REPORT INFORMATION
  Report Type: 
  Country: None (occurrence: None)
  Receive Date: 20120420
  Receipt Date: 20120412
  Transmission Date: 20120825
  Serious: Yes (Hospitalization)
  Sender: FDA-Public Use
  Company Number: CH-BAYER-2012-031990

PATIENT
  Age: 39 Year
  Sex: Female
  Weight: 68 kg

DRUGS (2)
  1. MIRENA [Suspect]
     Indication: MENORRHAGIA
     Dosage: 20 MCG/24HR, CONT
     Route: 015
     Dates: start: 20110416, end: 20120315
  2. MIRENA [Suspect]
     Indication: CONTRACEPTION

REACTIONS (3)
  - PAIN [None]
  - UTERINE POLYP [None]
  - GENITAL HAEMORRHAGE [None]
